FAERS Safety Report 13805737 (Version 2)
Quarter: 2017Q4

REPORT INFORMATION
  Report Type: Report from Study
  Country: CH (occurrence: CH)
  Receive Date: 20170728
  Receipt Date: 20171025
  Transmission Date: 20180320
  Serious: Yes (Other)
  Sender: FDA-Public Use
  Company Number: CH-ENDO PHARMACEUTICALS INC-2017-004087

PATIENT
  Weight: 117.5 kg

DRUGS (24)
  1. FOLIC ACID. [Concomitant]
     Active Substance: FOLIC ACID
     Indication: PRODUCT USED FOR UNKNOWN INDICATION
     Dosage: UNK UNKNOWN, UNKNOWN
     Route: 065
     Dates: start: 20151201
  2. BECOZYM                            /07503601/ [Concomitant]
     Indication: PRODUCT USED FOR UNKNOWN INDICATION
     Dosage: UNK
     Dates: start: 201603
  3. PARACETAMOL [Concomitant]
     Active Substance: ACETAMINOPHEN
     Indication: PRODUCT USED FOR UNKNOWN INDICATION
     Dosage: UNK UNKNOWN, UNKNOWN
     Route: 065
     Dates: start: 20121217
  4. REDOXON                            /00008001/ [Concomitant]
     Indication: PRODUCT USED FOR UNKNOWN INDICATION
     Dosage: UNK UNKNOWN, UNKNOWN
     Route: 065
     Dates: start: 20151203
  5. TAVEGYL [Concomitant]
     Active Substance: CLEMASTINE FUMARATE
     Indication: PRODUCT USED FOR UNKNOWN INDICATION
     Dosage: UNK UNKNOWN, UNKNOWN
     Route: 065
     Dates: start: 20140111
  6. CICLOSPORIN [Concomitant]
     Active Substance: CYCLOSPORINE
     Indication: CHRONIC KIDNEY DISEASE
     Dosage: UNK UNKNOWN, UNKNOWN
     Route: 065
  7. PREDNISON [Concomitant]
     Active Substance: PREDNISONE
     Indication: CHRONIC KIDNEY DISEASE
     Dosage: UNK UNKNOWN, UNKNOWN
     Route: 065
  8. MOTILIUM [Concomitant]
     Active Substance: DOMPERIDONE
     Indication: PRODUCT USED FOR UNKNOWN INDICATION
     Dosage: UNK UNKNOWN, UNKNOWN
     Route: 065
  9. NACL [Concomitant]
     Active Substance: SODIUM CHLORIDE
     Indication: PRODUCT USED FOR UNKNOWN INDICATION
     Dosage: 20 %, UNKNOWN
     Route: 065
     Dates: start: 20140215
  10. MAGNESIUM [Concomitant]
     Active Substance: MAGNESIUM
     Indication: PRODUCT USED FOR UNKNOWN INDICATION
     Dosage: UNK UNKNOWN, UNKNOWN
     Route: 065
  11. NEXIUM [Concomitant]
     Active Substance: ESOMEPRAZOLE MAGNESIUM
     Indication: PRODUCT USED FOR UNKNOWN INDICATION
     Dosage: UNK UNKNOWN, UNKNOWN
     Route: 065
  12. RITUXIMAB. [Concomitant]
     Active Substance: RITUXIMAB
     Indication: CHRONIC KIDNEY DISEASE
     Dosage: UNK UNKNOWN, UNKNOWN
     Route: 065
  13. AMLODIPINE [Concomitant]
     Active Substance: AMLODIPINE BESYLATE
     Indication: PRODUCT USED FOR UNKNOWN INDICATION
     Dosage: UNK UNKNOWN, UNKNOWN
     Route: 065
  14. LACTOBACILLUS ACID [Concomitant]
     Indication: PRODUCT USED FOR UNKNOWN INDICATION
     Dosage: UNK UNKNOWN, UNKNOWN
     Route: 065
     Dates: start: 20170722
  15. BENERVA [Concomitant]
     Active Substance: THIAMINE
     Indication: PRODUCT USED FOR UNKNOWN INDICATION
     Dosage: UNK UNKNOWN, UNKNOWN
     Route: 065
     Dates: start: 20151203
  16. TESTOVIRON DEP [Suspect]
     Active Substance: TESTOSTERONE ENANTHATE
     Indication: SECONDARY HYPOGONADISM
     Dosage: 250 MG, EVERY 2-3 WEEKS
     Route: 030
     Dates: start: 201403
  17. ACETYLSALICYLIC ACID [Concomitant]
     Active Substance: ASPIRIN
     Indication: PRODUCT USED FOR UNKNOWN INDICATION
     Dosage: {=100 MG, UNKNOWN
     Route: 065
     Dates: start: 20170407
  18. AVEED [Suspect]
     Active Substance: TESTOSTERONE UNDECANOATE
     Indication: SECONDARY HYPOGONADISM
     Dosage: 250 MG, EVERY 10-15 DAYS
     Route: 030
     Dates: start: 2007, end: 201403
  19. ASPIRIN CARDIO [Suspect]
     Active Substance: ASPIRIN
     Indication: PRODUCT USED FOR UNKNOWN INDICATION
     Dosage: 100 MG, DAILY
     Route: 048
  20. CALCIUM ACETATE. [Concomitant]
     Active Substance: CALCIUM ACETATE
     Indication: PRODUCT USED FOR UNKNOWN INDICATION
     Dosage: UNK UNKNOWN, UNKNOWN
     Route: 065
  21. EMLA [Concomitant]
     Active Substance: LIDOCAINE\PRILOCAINE
     Indication: PRODUCT USED FOR UNKNOWN INDICATION
     Dosage: UNK UNKNOWN, UNKNOWN
     Route: 065
  22. FERINJECT [Concomitant]
     Active Substance: FERRIC CARBOXYMALTOSE
     Indication: PRODUCT USED FOR UNKNOWN INDICATION
     Dosage: UNK UNKNOWN, UNKNOWN
     Route: 065
     Dates: start: 20170522
  23. GLUCOSE [Concomitant]
     Active Substance: DEXTROSE
     Indication: PRODUCT USED FOR UNKNOWN INDICATION
     Dosage: 40 %, UNKNOWN
     Route: 065
     Dates: start: 20161104
  24. VITAMIN D3 [Concomitant]
     Active Substance: CHOLECALCIFEROL
     Indication: PRODUCT USED FOR UNKNOWN INDICATION
     Dosage: UNK UNKNOWN, UNKNOWN
     Route: 065
     Dates: start: 20161109

REACTIONS (26)
  - End stage renal disease [Unknown]
  - Epicondylitis [Unknown]
  - Renal transplant failure [Unknown]
  - Pericardial haemorrhage [Unknown]
  - Superior vena cava stenosis [Unknown]
  - Pericarditis [Unknown]
  - Adjustment disorder with mixed anxiety and depressed mood [Unknown]
  - Prurigo [Unknown]
  - Vascular stent thrombosis [Unknown]
  - Periarthritis [Unknown]
  - Paralysis [Unknown]
  - Hyperphosphataemia [Unknown]
  - Restless legs syndrome [Unknown]
  - Nerve injury [Unknown]
  - Arteriovenous fistula thrombosis [Unknown]
  - Dermo-hypodermitis [Unknown]
  - Device related infection [Unknown]
  - Prinzmetal angina [Unknown]
  - Renal transplant [Recovered/Resolved]
  - Prinzmetal angina [Unknown]
  - Hyperparathyroidism secondary [Recovered/Resolved]
  - Sleep apnoea syndrome [Unknown]
  - Superior vena cava stenosis [Unknown]
  - Cardiac tamponade [Unknown]
  - Cardiac flutter [Unknown]
  - Arteriovenous fistula thrombosis [Unknown]

NARRATIVE: CASE EVENT DATE: 2010
